FAERS Safety Report 6455417-0 (Version None)
Quarter: 2009Q4

REPORT INFORMATION
  Report Type: 
  Country: None (occurrence: None)
  Receive Date: 20091125
  Receipt Date: 20091014
  Transmission Date: 20100525
  Serious: No
  Sender: FDA-Public Use
  Company Number: US-ABBOTT-09P-163-0603431-00

PATIENT
  Sex: Female
  Weight: 108.96 kg

DRUGS (9)
  1. SIMCOR [Suspect]
     Indication: BLOOD CHOLESTEROL INCREASED
     Dates: start: 20090401
  2. SINGULAIR [Suspect]
     Indication: ASTHMA
  3. ASMANEX TWISTHALER [Suspect]
     Indication: ASTHMA
  4. DIOVAN [Concomitant]
     Indication: HYPERTENSION
  5. AMLODIPINE BESYLATE [Concomitant]
     Indication: HYPERTENSION
  6. CYMBALTA [Concomitant]
     Indication: DEPRESSION
  7. WELLBUTRIN [Concomitant]
     Indication: DEPRESSION
  8. RABEPRAZOLE SODIUM [Concomitant]
     Indication: DRUG USE FOR UNKNOWN INDICATION
  9. TOPROL-XL [Concomitant]
     Indication: DRUG USE FOR UNKNOWN INDICATION

REACTIONS (3)
  - DIZZINESS [None]
  - FLUSHING [None]
  - RASH PRURITIC [None]
